APPROVED DRUG PRODUCT: COLESEVELAM HYDROCHLORIDE
Active Ingredient: COLESEVELAM HYDROCHLORIDE
Strength: 625MG
Dosage Form/Route: TABLET;ORAL
Application: A201354 | Product #001
Applicant: CHARTWELL RX SCIENCES LLC
Approved: Dec 17, 2020 | RLD: No | RS: No | Type: DISCN